FAERS Safety Report 16347386 (Version 1)
Quarter: 2019Q2

REPORT INFORMATION
  Report Type: Spontaneous
  Country: US (occurrence: US)
  Receive Date: 20190522
  Receipt Date: 20190522
  Transmission Date: 20190711
  Serious: No
  Sender: FDA-Public Use
  Company Number: None

PATIENT
  Age: 46 Year
  Sex: Female
  Weight: 51.75 kg

DRUGS (2)
  1. MULTIVITAMIN WOMENS FORMULA ONCE A DAY [Concomitant]
  2. MIRVASO [Suspect]
     Active Substance: BRIMONIDINE TARTRATE
     Indication: ERYTHEMA
     Dosage: ??          QUANTITY:1 PUMP;?
     Route: 062
     Dates: start: 20190507, end: 20190512

REACTIONS (1)
  - Rash erythematous [None]

NARRATIVE: CASE EVENT DATE: 20190512
